FAERS Safety Report 5877728-X (Version None)
Quarter: 2008Q3

REPORT INFORMATION
  Report Type: 
  Country: None (occurrence: None)
  Receive Date: 20080911
  Receipt Date: 20080901
  Transmission Date: 20090109
  Serious: Yes (Other)
  Sender: FDA-Public Use
  Company Number: US-JNJCH-2008022986

PATIENT
  Sex: Male

DRUGS (1)
  1. COOL MINT LISTERINE POCKETMIST [Suspect]
     Indication: DENTAL DISORDER PROPHYLAXIS
     Dosage: TEXT:10 SPRAYS ONCE
     Route: 048

REACTIONS (2)
  - LOSS OF CONSCIOUSNESS [None]
  - ROAD TRAFFIC ACCIDENT [None]
